FAERS Safety Report 12884219 (Version 1)
Quarter: 2016Q4

REPORT INFORMATION
  Report Type: Spontaneous
  Country: US (occurrence: US)
  Receive Date: 20161026
  Receipt Date: 20161026
  Transmission Date: 20170207
  Serious: No
  Sender: FDA-Public Use
  Company Number: US-PFIZER INC-2016497151

PATIENT
  Age: 67 Year
  Sex: Female

DRUGS (4)
  1. IBUPROFEN. [Suspect]
     Active Substance: IBUPROFEN
     Dosage: UNK
  2. CODEINE PHOSPHATE [Suspect]
     Active Substance: CODEINE PHOSPHATE
     Dosage: UNK
  3. LISINOPRIL. [Suspect]
     Active Substance: LISINOPRIL
     Dosage: UNK
  4. PERSANTINE [Suspect]
     Active Substance: DIPYRIDAMOLE
     Dosage: UNK

REACTIONS (1)
  - Drug hypersensitivity [Unknown]
